FAERS Safety Report 10743028 (Version 2)
Quarter: 2015Q1

REPORT INFORMATION
  Report Type: Spontaneous
  Country: US (occurrence: US)
  Receive Date: 20150127
  Receipt Date: 20150213
  Transmission Date: 20150721
  Serious: Yes (Hospitalization, Other)
  Sender: FDA-Public Use
  Company Number: US-GILEAD-2015-0133022

PATIENT
  Age: 68 Year
  Sex: Male

DRUGS (9)
  1. MIDODRINE [Concomitant]
     Active Substance: MIDODRINE
     Dosage: UNK
  2. ERTAPENEM [Concomitant]
     Active Substance: ERTAPENEM
     Dosage: UNK
  3. HARVONI [Suspect]
     Active Substance: LEDIPASVIR\SOFOSBUVIR
     Indication: PRODUCT USED FOR UNKNOWN INDICATION
     Dosage: UNK
     Route: 065
     Dates: end: 20150121
  4. FINASTERIDE. [Concomitant]
     Active Substance: FINASTERIDE
     Dosage: UNK
  5. DAPTOMYCIN. [Concomitant]
     Active Substance: DAPTOMYCIN
     Dosage: UNK
  6. FLECAINIDE [Concomitant]
     Active Substance: FLECAINIDE
     Dosage: UNK
  7. CHLORPROMAZINE [Concomitant]
     Active Substance: CHLORPROMAZINE
     Dosage: UNK
  8. VANCOMYCIN [Concomitant]
     Active Substance: VANCOMYCIN
     Dosage: UNK
  9. RIFAXIMIN [Concomitant]
     Active Substance: RIFAXIMIN
     Dosage: UNK

REACTIONS (2)
  - Blood creatinine increased [Unknown]
  - Dysphagia [Unknown]
